FAERS Safety Report 17685737 (Version 2)
Quarter: 2020Q2

REPORT INFORMATION
  Report Type: Spontaneous
  Country: IE (occurrence: IE)
  Receive Date: 20200420
  Receipt Date: 20200422
  Transmission Date: 20200714
  Serious: Yes (Death)
  Sender: FDA-Public Use
  Company Number: IE-JNJFOC-20200410813

PATIENT
  Age: 57 Year
  Sex: Female

DRUGS (17)
  1. PLAQUENIL                          /00072602/ [Suspect]
     Active Substance: HYDROXYCHLOROQUINE DIPHOSPHATE
     Route: 065
  2. ALENDRONATE (GENERIC) [Concomitant]
     Route: 065
  3. REMICADE [Suspect]
     Active Substance: INFLIXIMAB
     Indication: PRODUCT USED FOR UNKNOWN INDICATION
     Route: 042
  4. ENBREL [Suspect]
     Active Substance: ETANERCEPT
     Indication: PRODUCT USED FOR UNKNOWN INDICATION
     Route: 065
  5. ARAVA [Concomitant]
     Active Substance: LEFLUNOMIDE
     Route: 065
  6. MABTHERA [Suspect]
     Active Substance: RITUXIMAB
     Indication: RHEUMATOID ARTHRITIS
     Dates: start: 20091130, end: 20100107
  7. LEVOTHYROXINE SODIUM (G) [Concomitant]
     Route: 065
  8. SEROQUEL [Concomitant]
     Active Substance: QUETIAPINE FUMARATE
  9. AGOMELATINE [Concomitant]
     Active Substance: AGOMELATINE
  10. HUMIRA [Suspect]
     Active Substance: ADALIMUMAB
     Indication: PRODUCT USED FOR UNKNOWN INDICATION
  11. METHOTREXATE (G) [Concomitant]
     Route: 065
  12. AGOMELATINE [Concomitant]
     Active Substance: AGOMELATINE
     Route: 065
  13. PREDNISOLONE (GENERIC) [Concomitant]
     Route: 065
  14. DEPO-MEDRONE [Concomitant]
     Active Substance: METHYLPREDNISOLONE
     Route: 065
  15. PROTIUM [Concomitant]
     Route: 065
  16. SULFASALAZINE (G) [Concomitant]
     Route: 065
  17. SODIUM AUROTHIOMALATE (G) [Concomitant]
     Route: 065

REACTIONS (2)
  - Completed suicide [Fatal]
  - Drug ineffective [Fatal]
